FAERS Safety Report 8609005-8 (Version None)
Quarter: 2012Q3

REPORT INFORMATION
  Report Type: 
  Country: None (occurrence: None)
  Receive Date: 20120821
  Receipt Date: 20120816
  Transmission Date: 20120928
  Serious: Yes (Disabling)
  Sender: FDA-Public Use
  Company Number: PE-GLAXOSMITHKLINE-A0990305A

PATIENT
  Sex: Male

DRUGS (1)
  1. FLUTICASONE PROPIONATE/SALMETEROL [Suspect]
     Indication: RHINITIS ALLERGIC
     Dosage: 2PUFF PER DAY
     Route: 055
     Dates: start: 20120601

REACTIONS (1)
  - DEAFNESS UNILATERAL [None]
